FAERS Safety Report 21605391 (Version 3)
Quarter: 2023Q1

REPORT INFORMATION
  Report Type: Report from Study
  Country: US (occurrence: None)
  Receive Date: 20221116
  Receipt Date: 20230131
  Transmission Date: 20230418
  Serious: Yes (Hospitalization, Other)
  Sender: FDA-Public Use
  Company Number: US-ROCHE-3216973

PATIENT
  Age: 47 Year
  Sex: Female
  Weight: 66.2 kg

DRUGS (1)
  1. POLATUZUMAB VEDOTIN [Suspect]
     Active Substance: POLATUZUMAB VEDOTIN
     Indication: Richter^s syndrome
     Route: 042

REACTIONS (4)
  - Lymph node pain [Unknown]
  - Lymphadenopathy [Unknown]
  - Disease progression [Unknown]
  - Neck pain [Unknown]

NARRATIVE: CASE EVENT DATE: 20221108
